FAERS Safety Report 10651493 (Version 2)
Quarter: 2015Q2

REPORT INFORMATION
  Report Type: Report from Study
  Country: GB (occurrence: None)
  Receive Date: 20141211
  Receipt Date: 20150519
  Transmission Date: 20150821
  Serious: Yes (Death)
  Sender: FDA-Public Use
  Company Number: AMAG201400470

PATIENT

DRUGS (2)
  1. RIENSO (FERUMOXYTOL) INJECTION [Suspect]
     Active Substance: FERUMOXYTOL
     Indication: IMAGING PROCEDURE
     Route: 042
     Dates: start: 20130806, end: 20130806
  2. BUSCOPAN (HYOSCINE BUTYLBROMIDE) [Concomitant]

REACTIONS (4)
  - Aortic aneurysm rupture [None]
  - Death [None]
  - Concomitant disease progression [None]
  - Sudden death [None]

NARRATIVE: CASE EVENT DATE: 20141117
